FAERS Safety Report 16856133 (Version 6)
Quarter: 2020Q3

REPORT INFORMATION
  Report Type: Spontaneous
  Country: US (occurrence: US)
  Receive Date: 20190926
  Receipt Date: 20200923
  Transmission Date: 20201102
  Serious: No
  Sender: FDA-Public Use
  Company Number: US-PFIZER INC-2019413094

PATIENT
  Age: 61 Year
  Sex: Female

DRUGS (10)
  1. CLONAZEPAM. [Concomitant]
     Active Substance: CLONAZEPAM
     Dosage: UNK
  2. PARAPLATIN [Concomitant]
     Active Substance: CARBOPLATIN
     Indication: CHEMOTHERAPY
     Dosage: UNK
  3. DOCETAXEL. [Suspect]
     Active Substance: DOCETAXEL
     Indication: TRIPLE POSITIVE BREAST CANCER
     Dosage: UNK, CYCLIC (06 CYCLES, EVERY THREE WEEKS)
     Dates: start: 20130226, end: 201306
  4. DOCETAXEL ACCORD [Suspect]
     Active Substance: DOCETAXEL
     Indication: TRIPLE POSITIVE BREAST CANCER
     Dosage: UNK, CYCLIC (06 CYCLES, EVERY THREE WEEKS)
     Dates: start: 20130226, end: 20130604
  5. DOCETAXEL. [Suspect]
     Active Substance: DOCETAXEL
     Indication: TRIPLE POSITIVE BREAST CANCER
     Dosage: UNK, CYCLIC (06 CYCLES, EVERY THREE WEEKS)
     Dates: start: 20130226, end: 20130604
  6. TAXOTERE [Concomitant]
     Active Substance: DOCETAXEL
     Indication: CHEMOTHERAPY
     Dosage: UNK
  7. HERCEPTIN [Concomitant]
     Active Substance: TRASTUZUMAB
     Indication: CHEMOTHERAPY
     Dosage: UNK
  8. TAMOXIFEN [Concomitant]
     Active Substance: TAMOXIFEN
     Indication: HORMONE THERAPY
     Dosage: UNK
     Dates: start: 2013, end: 2018
  9. DOCEFREZ [Suspect]
     Active Substance: DOCETAXEL ANHYDROUS
     Indication: TRIPLE POSITIVE BREAST CANCER
     Dosage: UNK, CYCLIC (06 CYCLES, EVERY THREE WEEKS)
     Dates: start: 20130226, end: 201306
  10. NORVASC [Concomitant]
     Active Substance: AMLODIPINE BESYLATE
     Dosage: UNK

REACTIONS (7)
  - Hair disorder [Not Recovered/Not Resolved]
  - Hair colour changes [Not Recovered/Not Resolved]
  - Anxiety [Unknown]
  - Alopecia [Not Recovered/Not Resolved]
  - Madarosis [Not Recovered/Not Resolved]
  - Depression [Unknown]
  - Hair texture abnormal [Not Recovered/Not Resolved]

NARRATIVE: CASE EVENT DATE: 201307
